FAERS Safety Report 8910580 (Version 2)
Quarter: 2013Q1

REPORT INFORMATION
  Report Type: Spontaneous
  Country: US (occurrence: US)
  Receive Date: 20121114
  Receipt Date: 20130104
  Transmission Date: 20140127
  Serious: Yes (Other)
  Sender: FDA-Public Use
  Company Number: US-GLAXOSMITHKLINE-A1000571A

PATIENT
  Age: 71 Year
  Sex: Male

DRUGS (3)
  1. ADVAIR [Suspect]
     Indication: LUNG DISORDER
     Dosage: 1PUFF TWICE PER DAY
     Route: 055
     Dates: start: 201201
  2. SIMVASTATIN [Concomitant]
  3. LISINOPRIL [Concomitant]

REACTIONS (2)
  - Lymphoma [Not Recovered/Not Resolved]
  - Dysphonia [Not Recovered/Not Resolved]
